FAERS Safety Report 8264326-6 (Version None)
Quarter: 2012Q2

REPORT INFORMATION
  Report Type: 
  Country: None (occurrence: None)
  Receive Date: 20120406
  Receipt Date: 20120402
  Transmission Date: 20120825
  Serious: No
  Sender: FDA-Public Use
  Company Number: US-PFIZER INC-2012085005

PATIENT
  Sex: Female
  Weight: 72.562 kg

DRUGS (8)
  1. EFFEXOR XR [Suspect]
     Indication: ANTIDEPRESSANT THERAPY
  2. AMBIEN [Concomitant]
     Indication: SLEEP DISORDER
     Dosage: 12.5 MG, 1X/DAY
     Route: 048
  3. AVINZA [Suspect]
     Dosage: 150MG.DAILY
     Route: 048
     Dates: start: 20120101, end: 20120402
  4. AVINZA [Suspect]
     Indication: NERVE INJURY
     Dosage: 240 MG, 1X/DAY
     Route: 048
  5. AVINZA [Suspect]
     Indication: FIBROMYALGIA
     Dosage: 180 MG, DAILY
     Route: 048
     Dates: start: 20120324
  6. WELLBUTRIN [Suspect]
     Indication: ANTIDEPRESSANT THERAPY
  7. EFFEXOR XR [Suspect]
     Indication: PAIN
     Dosage: 300 MG, 2X/DAY
     Route: 048
  8. WELLBUTRIN [Suspect]
     Indication: PAIN
     Dosage: 150 MG, 1X/DAY
     Route: 048

REACTIONS (2)
  - DRUG INEFFECTIVE [None]
  - PAIN [None]
